FAERS Safety Report 9277781 (Version 1)
Quarter: 2013Q2

REPORT INFORMATION
  Report Type: Report from Study
  Country: US (occurrence: US)
  Receive Date: 20130508
  Receipt Date: 20130508
  Transmission Date: 20140414
  Serious: Yes (Other)
  Sender: FDA-Public Use
  Company Number: PHEH2013US009826

PATIENT
  Age: 35 Year
  Sex: Male

DRUGS (3)
  1. CLOZARIL [Suspect]
     Indication: SCHIZOAFFECTIVE DISORDER
     Dosage: UNK
  2. CLOZAPINE [Suspect]
     Dosage: UNK
  3. CLOZAPINE [Suspect]
     Dosage: UNK
     Dates: start: 20130301

REACTIONS (6)
  - Respiratory distress [Unknown]
  - Dyspnoea [Unknown]
  - Diabetes mellitus [Unknown]
  - Increased appetite [Unknown]
  - Thirst [Unknown]
  - Blood glucose increased [Unknown]
